FAERS Safety Report 8243709-4 (Version None)
Quarter: 2012Q1

REPORT INFORMATION
  Report Type: 
  Country: None (occurrence: None)
  Receive Date: 20120329
  Receipt Date: 20110303
  Transmission Date: 20120608
  Serious: No
  Sender: FDA-Public Use
  Company Number: US-MYLANLABS-2011S1004521

PATIENT
  Sex: Male

DRUGS (1)
  1. EMSAM [Suspect]

REACTIONS (2)
  - INSOMNIA [None]
  - NIGHTMARE [None]
